FAERS Safety Report 9718991 (Version 1)
Quarter: 2013Q4

REPORT INFORMATION
  Report Type: Report from Study
  Country: CA (occurrence: CA)
  Receive Date: 20131127
  Receipt Date: 20131127
  Transmission Date: 20140711
  Serious: Yes (Other)
  Sender: FDA-Public Use
  Company Number: CA-ABBVIE-13P-028-1173312-00

PATIENT
  Sex: Female

DRUGS (1)
  1. HUMIRA [Suspect]
     Indication: PSORIASIS
     Route: 058
     Dates: start: 20090213, end: 201304

REACTIONS (4)
  - Antiphospholipid syndrome [Unknown]
  - Pulmonary embolism [Unknown]
  - Phlebitis [Unknown]
  - Drug ineffective [Unknown]
